FAERS Safety Report 15468242 (Version 1)
Quarter: 2018Q4

REPORT INFORMATION
  Report Type: Spontaneous
  Country: FR (occurrence: FR)
  Receive Date: 20181005
  Receipt Date: 20181005
  Transmission Date: 20190204
  Serious: Yes (Other)
  Sender: FDA-Public Use
  Company Number: FR-B.I. PHARMACEUTICALS,INC./RIDGEFIELD-2018-12-003275

PATIENT
  Age: 67 Year
  Sex: Male

DRUGS (4)
  1. MODOPAR [Suspect]
     Active Substance: BENSERAZIDE HYDROCHLORIDE\LEVODOPA
     Indication: PARKINSON^S DISEASE
     Dosage: NON PRECISEE
     Route: 048
  2. SIFROL [Suspect]
     Active Substance: PRAMIPEXOLE
     Indication: PARKINSON^S DISEASE
     Dosage: NON PRECISEE
     Route: 048
  3. YERVOY [Suspect]
     Active Substance: IPILIMUMAB
     Indication: RENAL CANCER METASTATIC
     Dosage: NON PRECISEE, FORM STRENGTH: 5 MG/ML, ROUTE OF ADMIN: INTRAVENOUS DRIP
     Route: 042
     Dates: end: 201803
  4. OPDIVO [Suspect]
     Active Substance: NIVOLUMAB
     Indication: RENAL CANCER METASTATIC
     Dosage: FORM STRENGTH :10 MG/ML,
     Route: 042
     Dates: end: 201803

REACTIONS (1)
  - Colitis microscopic [Recovering/Resolving]

NARRATIVE: CASE EVENT DATE: 201802
